FAERS Safety Report 5647880-X (Version None)
Quarter: 2008Q1

REPORT INFORMATION
  Report Type: 
  Country: None (occurrence: None)
  Receive Date: 20080303
  Receipt Date: 20080220
  Transmission Date: 20080703
  Serious: Yes (Other)
  Sender: FDA-Public Use
  Company Number: US-PFIZER INC-2008017624

PATIENT
  Sex: Male
  Weight: 103.4 kg

DRUGS (10)
  1. CHANTIX [Suspect]
     Indication: SMOKING CESSATION THERAPY
     Route: 048
     Dates: start: 20080201, end: 20080201
  2. COFFEE [Suspect]
  3. ZYPREXA [Concomitant]
     Indication: SCHIZOPHRENIA
  4. KLONOPIN [Concomitant]
     Indication: PANIC REACTION
  5. DILANTIN [Concomitant]
     Indication: CONVULSION
  6. BENADRYL [Concomitant]
     Indication: HYPERSENSITIVITY
  7. DETROL LA [Concomitant]
     Indication: ENURESIS
  8. ATENOLOL [Concomitant]
     Indication: HYPERTENSION
  9. AMITRIPTYLINE HCL [Concomitant]
     Indication: DEPRESSION
  10. VITAMINS [Concomitant]

REACTIONS (6)
  - AGITATION [None]
  - FEELING ABNORMAL [None]
  - INCORRECT DOSE ADMINISTERED [None]
  - MANIA [None]
  - MOOD SWINGS [None]
  - NERVOUSNESS [None]
